FAERS Safety Report 5575040-X (Version None)
Quarter: 2007Q4

REPORT INFORMATION
  Report Type: 
  Country: None (occurrence: None)
  Receive Date: 20071227
  Receipt Date: 20071219
  Transmission Date: 20080405
  Serious: Yes (Death)
  Sender: FDA-Public Use
  Company Number: US-GENENTECH-251187

PATIENT
  Sex: Female
  Weight: 58.957 kg

DRUGS (3)
  1. RITUXAN [Suspect]
     Indication: LUPUS NEPHRITIS
     Dosage: 375 UNK, 1/WEEK
     Route: 042
     Dates: start: 20060401
  2. PLAQUENIL [Concomitant]
     Indication: DRUG USE FOR UNKNOWN INDICATION
  3. VASOTEC [Concomitant]
     Indication: DRUG USE FOR UNKNOWN INDICATION

REACTIONS (3)
  - PNEUMONIA [None]
  - PULMONARY HAEMORRHAGE [None]
  - PYREXIA [None]
